FAERS Safety Report 11790121 (Version 2)
Quarter: 2015Q4

REPORT INFORMATION
  Report Type: Report from Study
  Country: FI (occurrence: FI)
  Receive Date: 20151201
  Receipt Date: 20151215
  Transmission Date: 20160305
  Serious: Yes (Death)
  Sender: FDA-Public Use
  Company Number: FI-ABBVIE-15P-055-1500588-00

PATIENT
  Age: 76 Year
  Sex: Male

DRUGS (1)
  1. DUODOPA [Suspect]
     Active Substance: CARBIDOPA\LEVODOPA
     Indication: PARKINSON^S DISEASE
     Dosage: 24 H TREATMENT
     Route: 050
     Dates: start: 2009

REACTIONS (4)
  - Stoma site discharge [Unknown]
  - Incorrect route of drug administration [Unknown]
  - Death [Fatal]
  - Device dislocation [Unknown]

NARRATIVE: CASE EVENT DATE: 201511
